FAERS Safety Report 15624738 (Version 1)
Quarter: 2018Q4

REPORT INFORMATION
  Report Type: Spontaneous
  Country: SG (occurrence: SG)
  Receive Date: 20181116
  Receipt Date: 20181116
  Transmission Date: 20190205
  Serious: Yes (Other)
  Sender: FDA-Public Use
  Company Number: SG-HBP-2018SG017813

PATIENT
  Age: 74 Year

DRUGS (3)
  1. PEMETREXED                         /01493902/ [Concomitant]
     Active Substance: PEMETREXED
     Indication: LUNG ADENOCARCINOMA RECURRENT
     Dosage: UNK
     Dates: start: 20181101
  2. AKYNZEO [Suspect]
     Active Substance: NETUPITANT\PALONOSETRON HYDROCHLORIDE
     Indication: PROPHYLAXIS OF NAUSEA AND VOMITING
     Dosage: 1 DOSAGE FORM BEFORE CHEMOTHERAPY
     Route: 048
     Dates: start: 20181101
  3. CISPLATINUM [Concomitant]
     Active Substance: CISPLATIN
     Indication: LUNG ADENOCARCINOMA RECURRENT
     Dosage: UNK
     Dates: start: 20181101

REACTIONS (2)
  - Hyponatraemia [Unknown]
  - Inappropriate antidiuretic hormone secretion [Unknown]

NARRATIVE: CASE EVENT DATE: 20181104
